FAERS Safety Report 9120372 (Version 1)
Quarter: 2013Q1

REPORT INFORMATION
  Report Type: Spontaneous
  Country: MX (occurrence: MX)
  Receive Date: 20130226
  Receipt Date: 20130226
  Transmission Date: 20140127
  Serious: Yes (Other)
  Sender: FDA-Public Use
  Company Number: MX-SHIRE-ALL1-2013-00795

PATIENT
  Age: 2 Year
  Sex: Male

DRUGS (1)
  1. ELAPRASE [Suspect]
     Indication: MUCOPOLYSACCHARIDOSIS II
     Dosage: UNK, UNKNOWN
     Route: 041
     Dates: start: 20130112

REACTIONS (4)
  - Convulsion [Unknown]
  - Tachycardia [Recovered/Resolved]
  - Pyrexia [Unknown]
  - Infusion related reaction [Unknown]
